FAERS Safety Report 4759927-3 (Version None)
Quarter: 2005Q3

REPORT INFORMATION
  Report Type: 
  Country: None (occurrence: None)
  Receive Date: 20050902
  Receipt Date: 20050826
  Transmission Date: 20060218
  Serious: Yes (Hospitalization)
  Sender: FDA-Public Use
  Company Number: US-ABBOTT-05P-163-0309507-00

PATIENT
  Sex: Female
  Weight: 52.664 kg

DRUGS (7)
  1. HUMIRA [Suspect]
     Indication: POLYARTHRITIS
     Route: 058
     Dates: start: 20030601, end: 20041101
  2. HUMIRA [Suspect]
     Route: 058
     Dates: start: 20050201
  3. PREDNISONE TAB [Concomitant]
     Indication: POLYARTHRITIS
     Route: 048
  4. INDOMETHACIN [Concomitant]
     Indication: INFLAMMATION
     Route: 048
     Dates: start: 19970101
  5. INDOMETHACIN [Concomitant]
     Route: 048
     Dates: start: 19970101
  6. PROPACET 100 [Concomitant]
     Indication: PAIN
     Route: 048
     Dates: start: 19950101
  7. IRON [Concomitant]
     Indication: ANAEMIA
     Dosage: 1-3 TABLETS
     Dates: start: 20020101

REACTIONS (2)
  - OSTEOARTHRITIS [None]
  - UTERINE LEIOMYOMA [None]
